FAERS Safety Report 6297199-1 (Version None)
Quarter: 2009Q3

REPORT INFORMATION
  Report Type: 
  Country: None (occurrence: None)
  Receive Date: 20090804
  Receipt Date: 20090804
  Transmission Date: 20100115
  Serious: No
  Sender: FDA-Public Use
  Company Number: None

PATIENT
  Age: 52 Year
  Sex: Female

DRUGS (9)
  1. NITROFURANTOIN [Suspect]
     Dates: start: 20030617, end: 20070803
  2. VICODIN [Concomitant]
  3. POTASSIUM CHLORIDE [Concomitant]
  4. CYCLOBENZAPRINE HCL [Concomitant]
  5. ATROVENT [Concomitant]
  6. ALBUTEROL [Concomitant]
  7. PSYLLIUM [Concomitant]
  8. ULTRAM [Concomitant]
  9. WELLBUTRIN [Concomitant]

REACTIONS (8)
  - AUTOIMMUNE HEPATITIS [None]
  - CHRONIC HEPATITIS [None]
  - HEPATIC CIRRHOSIS [None]
  - HEPATIC FIBROSIS [None]
  - HEPATIC STEATOSIS [None]
  - HYPERGAMMAGLOBULINAEMIA [None]
  - LIVER INJURY [None]
  - WEIGHT DECREASED [None]
